FAERS Safety Report 5280651-5 (Version None)
Quarter: 2007Q1

REPORT INFORMATION
  Report Type: 
  Country: None (occurrence: None)
  Receive Date: 20070329
  Receipt Date: 20070312
  Transmission Date: 20070707
  Serious: Yes (Other)
  Sender: FDA-Public Use
  Company Number: US-SANOFI-SYNTHELABO-A03200702230

PATIENT
  Sex: Female

DRUGS (2)
  1. CYMBALTA [Concomitant]
     Dosage: UNK
  2. AMBIEN [Suspect]
     Indication: INSOMNIA
     Route: 048
     Dates: start: 20060411, end: 20060411

REACTIONS (6)
  - ABNORMAL BEHAVIOUR [None]
  - AMNESIA [None]
  - HALLUCINATION [None]
  - NERVE INJURY [None]
  - PAIN IN EXTREMITY [None]
  - SPEECH DISORDER [None]
